FAERS Safety Report 25607128 (Version 1)
Quarter: 2025Q3

REPORT INFORMATION
  Report Type: Spontaneous
  Country: US (occurrence: None)
  Receive Date: 20250724
  Receipt Date: 20250724
  Transmission Date: 20251021
  Serious: Yes (Other)
  Sender: FDA-CTU
  Company Number: None

PATIENT
  Age: 33 Year
  Sex: Male
  Weight: 90 kg

DRUGS (2)
  1. CEFDINIR [Suspect]
     Active Substance: CEFDINIR
     Indication: Skin infection
     Dosage: 300 MG TWICE A DAY ORAL
     Route: 048
  2. CEFDINIR [Concomitant]
     Active Substance: CEFDINIR
     Dates: start: 20250623, end: 20250630

REACTIONS (2)
  - Physical product label issue [None]
  - Product dispensing error [None]

NARRATIVE: CASE EVENT DATE: 20250723
